FAERS Safety Report 12639269 (Version 2)
Quarter: 2017Q1

REPORT INFORMATION
  Report Type: Spontaneous
  Country: US (occurrence: US)
  Receive Date: 20160810
  Receipt Date: 20170203
  Transmission Date: 20170428
  Serious: Yes (Hospitalization)
  Sender: FDA-Public Use
  Company Number: US-ACTELION-A-US2016-140187

PATIENT
  Age: 52 Year
  Sex: Female
  Weight: 59.86 kg

DRUGS (2)
  1. VELETRI [Suspect]
     Active Substance: EPOPROSTENOL
     Indication: PULMONARY HYPERTENSION
     Dosage: 30 NG/KG, PER MIN
     Route: 042
     Dates: start: 20150929
  2. OPSUMIT [Suspect]
     Active Substance: MACITENTAN
     Indication: PULMONARY HYPERTENSION
     Dosage: 10 MG, QD
     Route: 048
     Dates: start: 20140326

REACTIONS (5)
  - Pain in jaw [Unknown]
  - Supraventricular tachycardia [Unknown]
  - Cardiac ablation [Unknown]
  - Diarrhoea [Unknown]
  - Nausea [Unknown]
